FAERS Safety Report 7772674-9 (Version None)
Quarter: 2011Q3

REPORT INFORMATION
  Report Type: 
  Country: None (occurrence: None)
  Receive Date: 20110922
  Receipt Date: 20110712
  Transmission Date: 20111222
  Serious: No
  Sender: FDA-Public Use
  Company Number: US-ASTRAZENECA-2011SE41712

PATIENT
  Sex: Female

DRUGS (7)
  1. ESTRADIOL [Concomitant]
  2. MIRTAZAPINE [Concomitant]
  3. SEROQUEL [Suspect]
     Indication: DEPRESSION
     Route: 048
  4. SERTRELINE [Concomitant]
  5. LISINOPRIL [Concomitant]
  6. GEMFIBROZIL [Concomitant]
  7. MEDROXY PR [Concomitant]
     Indication: MENOPAUSE

REACTIONS (2)
  - INSOMNIA [None]
  - DRUG DOSE OMISSION [None]
